FAERS Safety Report 9456029 (Version 1)
Quarter: 2013Q3

REPORT INFORMATION
  Report Type: Spontaneous
  Country: GB (occurrence: GB)
  Receive Date: 20130813
  Receipt Date: 20130813
  Transmission Date: 20140515
  Serious: Yes (Disabling)
  Sender: FDA-Public Use
  Company Number: PHHY2013GB083673

PATIENT
  Age: 79 Year
  Sex: Male

DRUGS (6)
  1. TAMSULOSIN HYDROCHLORIDE [Suspect]
     Indication: URINARY TRACT OBSTRUCTION
     Dosage: 400 UG, QD
     Route: 048
     Dates: start: 20130706, end: 20130726
  2. PARACETAMOL [Concomitant]
     Dosage: 1 G, EVERY 4-6 HOURS
  3. SIMVASTATIN [Concomitant]
     Dosage: 20 MG, QD AT NIGHT
  4. BISOPROLOL [Concomitant]
     Dosage: 1.25 MG, QD
  5. BISACODYL [Concomitant]
     Dosage: 5 MG, 1-2 AT NIGHT
  6. OMEPRAZOLE [Concomitant]
     Dosage: 20 MG, QD

REACTIONS (6)
  - Testicular pain [Not Recovered/Not Resolved]
  - Testicular swelling [Not Recovered/Not Resolved]
  - Groin pain [Not Recovered/Not Resolved]
  - Arthralgia [Not Recovered/Not Resolved]
  - Local swelling [Not Recovered/Not Resolved]
  - Joint swelling [Not Recovered/Not Resolved]
